FAERS Safety Report 6950915-5 (Version None)
Quarter: 2010Q3

REPORT INFORMATION
  Report Type: 
  Country: None (occurrence: None)
  Receive Date: 20100828
  Receipt Date: 20100407
  Transmission Date: 20110219
  Serious: No
  Sender: FDA-Public Use
  Company Number: US-ABBOTT-10P-163-0630326-00

PATIENT

DRUGS (1)
  1. NIASPAN [Suspect]
     Indication: HIGH DENSITY LIPOPROTEIN ABNORMAL
     Route: 048

REACTIONS (3)
  - CREATININE RENAL CLEARANCE INCREASED [None]
  - FREQUENT BOWEL MOVEMENTS [None]
  - NAUSEA [None]
